FAERS Safety Report 9944995 (Version 1)
Quarter: 2014Q1

REPORT INFORMATION
  Report Type: Report from Study
  Country: US (occurrence: US)
  Receive Date: 20140303
  Receipt Date: 20140303
  Transmission Date: 20141002
  Serious: No
  Sender: FDA-Public Use
  Company Number: US-ABBVIE-13P-163-1051868-00

PATIENT
  Sex: Female

DRUGS (1)
  1. HUMIRA [Suspect]
     Indication: RHEUMATOID ARTHRITIS
     Dates: start: 20121201, end: 2013

REACTIONS (9)
  - Palpitations [Unknown]
  - Bronchitis [Unknown]
  - Sinusitis [Unknown]
  - Pneumonia [Unknown]
  - Oral herpes [Unknown]
  - Hypoaesthesia [Unknown]
  - Paraesthesia [Unknown]
  - Headache [Unknown]
  - Infection [Not Recovered/Not Resolved]
